FAERS Safety Report 13212255 (Version 2)
Quarter: 2017Q1

REPORT INFORMATION
  Report Type: Spontaneous
  Country: CY (occurrence: CY)
  Receive Date: 20170210
  Receipt Date: 20170222
  Transmission Date: 20170428
  Serious: Yes (Other)
  Sender: FDA-Public Use
  Company Number: CY-PFIZER INC-2017055307

PATIENT
  Age: 69 Year
  Sex: Male

DRUGS (12)
  1. CALCIUM [Concomitant]
     Active Substance: CALCIUM
     Indication: MICROSCOPIC POLYANGIITIS
     Dosage: 1000 MG, DAILY
  2. VITAMIN D3 [Concomitant]
     Active Substance: CHOLECALCIFEROL
     Indication: MICROSCOPIC POLYANGIITIS
     Dosage: 1000 IU, DAILY
  3. ENALAPRIL [Concomitant]
     Active Substance: ENALAPRIL
     Indication: MICROSCOPIC POLYANGIITIS
     Dosage: 5 MG, 1X/DAY
  4. MEDROL [Suspect]
     Active Substance: METHYLPREDNISOLONE
     Dosage: 6 MG, DAILY
     Route: 048
  5. CYCLOPHOSPHAMIDE. [Suspect]
     Active Substance: CYCLOPHOSPHAMIDE
     Indication: MICROSCOPIC POLYANGIITIS
     Dosage: 15 MG/KG, MONTHLY FOR 6 MONTHS
     Route: 040
  6. ZOLEDRONIC ACID [Concomitant]
     Active Substance: ZOLEDRONIC ACID
     Indication: MICROSCOPIC POLYANGIITIS
     Dosage: 5 MG, YEARLY
     Route: 042
  7. MEDROL [Suspect]
     Active Substance: METHYLPREDNISOLONE
     Indication: MICROSCOPIC POLYANGIITIS
     Dosage: UNK, CYCLIC, 2X1
  8. PREDNISOLONE. [Suspect]
     Active Substance: PREDNISOLONE
     Indication: MICROSCOPIC POLYANGIITIS
     Dosage: 1 MG/KG, UNK
     Route: 048
  9. TRIMETHOPRIM SULFAMETHOXAZOLE [Concomitant]
     Active Substance: SULFAMETHOXAZOLE\TRIMETHOPRIM
     Indication: MICROSCOPIC POLYANGIITIS
     Dosage: UNK, CYCLIC, 3 DAYS/WEEKLY
  10. METHYLPREDNISOLONE SODIUM SUCCINATE. [Suspect]
     Active Substance: METHYLPREDNISOLONE SODIUM SUCCINATE
     Indication: MICROSCOPIC POLYANGIITIS
     Dosage: 1 G, 3X/DAY
     Route: 040
  11. RITUXIMAB [Suspect]
     Active Substance: RITUXIMAB
     Indication: MICROSCOPIC POLYANGIITIS
     Dosage: 1000 MG, 2X/DAY (0-15)
  12. MEDROL [Suspect]
     Active Substance: METHYLPREDNISOLONE
     Dosage: 16 MG, DAILY

REACTIONS (6)
  - White blood cell count decreased [Recovering/Resolving]
  - Glomerulonephritis [Unknown]
  - Sensory disturbance [Unknown]
  - Oedema peripheral [Unknown]
  - Gait disturbance [Unknown]
  - Asthenia [Unknown]
